FAERS Safety Report 18159496 (Version 1)
Quarter: 2020Q3

REPORT INFORMATION
  Report Type: Other
  Country: MX (occurrence: MX)
  Receive Date: 20200818
  Receipt Date: 20200818
  Transmission Date: 20201103
  Serious: Yes (Other)
  Sender: FDA-Public Use
  Company Number: MX-ROCHE-2659261

PATIENT
  Age: 57 Year
  Sex: Male

DRUGS (6)
  1. MYCOPHENOLATE MOFETIL. [Suspect]
     Active Substance: MYCOPHENOLATE MOFETIL
     Route: 065
     Dates: start: 2014
  2. TACROLIMUS. [Suspect]
     Active Substance: TACROLIMUS
     Indication: PROPHYLAXIS AGAINST TRANSPLANT REJECTION
     Route: 065
     Dates: start: 2013
  3. THALIDOMIDE [Suspect]
     Active Substance: THALIDOMIDE
     Indication: IMMUNOSUPPRESSION
     Route: 065
     Dates: start: 2014
  4. CYCLOSPORINE A [Suspect]
     Active Substance: CYCLOSPORINE
     Indication: IMMUNOSUPPRESSION
     Route: 065
     Dates: start: 2014
  5. PREDNISONE. [Suspect]
     Active Substance: PREDNISONE
     Indication: IMMUNOSUPPRESSION
     Route: 065
     Dates: start: 2014
  6. MYCOPHENOLATE MOFETIL. [Suspect]
     Active Substance: MYCOPHENOLATE MOFETIL
     Indication: PROPHYLAXIS AGAINST TRANSPLANT REJECTION
     Route: 065
     Dates: start: 2013

REACTIONS (12)
  - Mucosal inflammation [Unknown]
  - Epstein-Barr virus infection [Unknown]
  - Infection [Unknown]
  - Upper respiratory tract infection [Unknown]
  - Enteritis infectious [Unknown]
  - Nausea [Unknown]
  - Diarrhoea [Unknown]
  - Pyrexia [Unknown]
  - Gastrointestinal toxicity [Unknown]
  - Vomiting [Unknown]
  - Neutropenia [Unknown]
  - Metabolic disorder [Unknown]
